FAERS Safety Report 5981663-6 (Version None)
Quarter: 2008Q4

REPORT INFORMATION
  Report Type: 
  Country: None (occurrence: None)
  Receive Date: 20081205
  Receipt Date: 20081125
  Transmission Date: 20090506
  Serious: Yes (Hospitalization)
  Sender: FDA-Public Use
  Company Number: FR-ELI_LILLY_AND_COMPANY-FR200810003047

PATIENT
  Sex: Female
  Weight: 100 kg

DRUGS (4)
  1. CYMBALTA [Suspect]
     Indication: DEPRESSION
     Dosage: 60 MG, DAILY (1/D)
     Route: 048
     Dates: start: 20080327, end: 20080101
  2. CYMBALTA [Suspect]
     Dosage: 30 MG, DAILY (1/D)
     Route: 048
     Dates: start: 20081010, end: 20081015
  3. TERCIAN [Concomitant]
     Dosage: 50 MG, DAILY (1/D)
     Route: 048
     Dates: start: 20080418
  4. XANAX [Concomitant]
     Dosage: 0.75 MG, DAILY (1/D)
     Route: 048
     Dates: start: 20080524

REACTIONS (3)
  - ANTICHOLINERGIC SYNDROME [None]
  - PHLEBITIS [None]
  - URINARY RETENTION [None]
